FAERS Safety Report 20505623 (Version 1)
Quarter: 2022Q1

REPORT INFORMATION
  Report Type: Spontaneous
  Country: US (occurrence: None)
  Receive Date: 20220222
  Receipt Date: 20220222
  Transmission Date: 20220423
  Serious: Yes (Hospitalization)
  Sender: FDA-Public Use
  Company Number: None

PATIENT
  Sex: Female

DRUGS (2)
  1. ORENCIA [Suspect]
     Active Substance: ABATACEPT
     Indication: Rheumatoid arthritis
     Dosage: FREQUENCY : WEEKLY;?
     Route: 058
     Dates: start: 20220104
  2. ORENCIA [Suspect]
     Active Substance: ABATACEPT
     Dosage: OTHER QUANTITY : 125 MG (1 ML);?FREQUENCY : WEEKLY;?
     Route: 058

REACTIONS (1)
  - Respiratory failure [None]
